FAERS Safety Report 8892211 (Version 1)
Quarter: 2012Q4

REPORT INFORMATION
  Report Type: 
  Country: US (occurrence: US)
  Receive Date: 20121107
  Receipt Date: 20121107
  Transmission Date: 20130627
  Serious: No
  Sender: FDA-Public Use
  Company Number: US-AMGEN-USASP2011060829

PATIENT
  Sex: Female

DRUGS (5)
  1. ENBREL [Suspect]
     Indication: PRODUCT USED FOR UNKNOWN INDICATION
     Dosage: 50 mg, qwk
  2. HUMIRA [Concomitant]
  3. VITAMIN D3 [Concomitant]
     Dosage: 5000 IU, UNK
     Route: 048
  4. CALCIUM [Concomitant]
     Route: 048
  5. FOLIC ACID [Concomitant]
     Dosage: 1 mg, UNK
     Route: 048

REACTIONS (2)
  - Pain [Unknown]
  - Drug ineffective [Unknown]
